FAERS Safety Report 7454353-0 (Version None)
Quarter: 2011Q2

REPORT INFORMATION
  Report Type: 
  Country: None (occurrence: None)
  Receive Date: 20110503
  Receipt Date: 20110419
  Transmission Date: 20111010
  Serious: Yes (Hospitalization)
  Sender: FDA-Public Use
  Company Number: TW-RANBAXY-2011RR-43195

PATIENT
  Age: 56 Year
  Sex: Female

DRUGS (5)
  1. PRIMPERAN TAB [Suspect]
     Dosage: 15 MG, UNK
     Route: 048
  2. CEPHALOSPORIN [Concomitant]
     Indication: PERITONITIS BACTERIAL
     Route: 042
  3. PRIMPERAN TAB [Suspect]
     Indication: NAUSEA
     Dosage: 20 MG, UNK
     Route: 048
     Dates: start: 20031121
  4. PRIMPERAN TAB [Suspect]
     Indication: VOMITING
  5. PRIMPERAN TAB [Suspect]

REACTIONS (9)
  - GRIMACING [None]
  - BASAL GANGLIA INFARCTION [None]
  - MUSCLE RIGIDITY [None]
  - GAIT DISTURBANCE [None]
  - CHOREA [None]
  - DYSTONIA [None]
  - BALANCE DISORDER [None]
  - DYSPHAGIA [None]
  - DYSKINESIA [None]
